FAERS Safety Report 6286880-6 (Version None)
Quarter: 2009Q3

REPORT INFORMATION
  Report Type: 
  Country: None (occurrence: None)
  Receive Date: 20090728
  Receipt Date: 20090717
  Transmission Date: 20100115
  Serious: Yes (Disabling)
  Sender: FDA-Public Use
  Company Number: US-MERCK-0810USA00727

PATIENT
  Age: 64 Year
  Sex: Female

DRUGS (5)
  1. FOSAMAX [Suspect]
     Indication: RESORPTION BONE INCREASED
     Route: 048
     Dates: start: 19980101
  2. FOSAMAX [Suspect]
     Route: 048
     Dates: end: 20060101
  3. DILANTIN [Concomitant]
     Indication: CONVULSION
     Route: 065
     Dates: start: 19720101
  4. HORMONES (UNSPECIFIED) [Concomitant]
     Indication: HORMONE THERAPY
     Route: 065
     Dates: start: 19950101
  5. [THERAPY UNSPECIFIED] [Concomitant]
     Indication: BLOOD CHOLESTEROL INCREASED
     Route: 065
     Dates: start: 19980101

REACTIONS (9)
  - DEPRESSION [None]
  - JAW DISORDER [None]
  - NASOPHARYNGITIS [None]
  - ORAL INFECTION [None]
  - OSTEONECROSIS [None]
  - RESORPTION BONE INCREASED [None]
  - SINUSITIS [None]
  - TOOTH ABSCESS [None]
  - TRISMUS [None]
